FAERS Safety Report 24896362 (Version 1)
Quarter: 2025Q1

REPORT INFORMATION
  Report Type: Spontaneous
  Country: DE (occurrence: DE)
  Receive Date: 20250128
  Receipt Date: 20250128
  Transmission Date: 20250409
  Serious: Yes (Death, Hospitalization, Other)
  Sender: BAUSCH AND LOMB
  Company Number: None

PATIENT
  Age: 88 Year
  Sex: Female

DRUGS (1)
  1. AZATHIOPRINE [Suspect]
     Active Substance: AZATHIOPRINE
     Indication: Myasthenia gravis
     Dosage: 50 MG 1-0-1
     Route: 048
     Dates: start: 20241204, end: 20250108

REACTIONS (2)
  - Pancytopenia [Fatal]
  - Sepsis [Unknown]

NARRATIVE: CASE EVENT DATE: 20250108
